FAERS Safety Report 17202304 (Version 1)
Quarter: 2019Q4

REPORT INFORMATION
  Report Type: Spontaneous
  Country: US (occurrence: US)
  Receive Date: 20191226
  Receipt Date: 20191226
  Transmission Date: 20200122
  Serious: No
  Sender: FDA-Public Use
  Company Number: US-PFIZER INC-2019552971

PATIENT
  Age: 68 Year
  Sex: Male
  Weight: 81.65 kg

DRUGS (1)
  1. GABAPENTIN. [Suspect]
     Active Substance: GABAPENTIN
     Indication: NEURALGIA
     Dosage: 300 MG ONCE A DAY AT NIGHT

REACTIONS (3)
  - Somnolence [Unknown]
  - Off label use [Unknown]
  - Product use in unapproved indication [Unknown]
